FAERS Safety Report 9656537 (Version 1)
Quarter: 2013Q4

REPORT INFORMATION
  Report Type: Spontaneous
  Country: US (occurrence: None)
  Receive Date: 20131029
  Receipt Date: 20131029
  Transmission Date: 20140711
  Serious: Yes (Other)
  Sender: FDA-Public Use
  Company Number: None

PATIENT
  Age: 78 Year
  Sex: Male
  Weight: 95.26 kg

DRUGS (1)
  1. LEVOTHYROXINE [Suspect]
     Route: 048

REACTIONS (1)
  - Medication error [None]
